FAERS Safety Report 23811333 (Version 1)
Quarter: 2024Q2

REPORT INFORMATION
  Report Type: Spontaneous
  Country: US (occurrence: US)
  Receive Date: 20240503
  Receipt Date: 20240503
  Transmission Date: 20240716
  Serious: No
  Sender: FDA-Public Use
  Company Number: US-GILEAD-2024-0671340

PATIENT
  Age: 46 Year
  Sex: Female

DRUGS (2)
  1. LENACAPAVIR [Suspect]
     Active Substance: LENACAPAVIR
     Indication: Product used for unknown indication
     Dosage: 927 MG IN 2 SPLIT SUBCUTANEOUS INJECTIONS
     Route: 058
     Dates: start: 20240429
  2. LENACAPAVIR [Suspect]
     Active Substance: LENACAPAVIR
     Dosage: LOADING DOSE
     Route: 048
     Dates: start: 20240429

REACTIONS (1)
  - Administration site extravasation [Unknown]
